FAERS Safety Report 15999859 (Version 1)
Quarter: 2019Q1

REPORT INFORMATION
  Report Type: Spontaneous
  Country: US (occurrence: US)
  Receive Date: 20190225
  Receipt Date: 20190225
  Transmission Date: 20190418
  Serious: Yes (Other)
  Sender: FDA-Public Use
  Company Number: US-COOPERSURGICAL, INC.-US-2019CPS000406

PATIENT

DRUGS (1)
  1. PARAGARD T 380A [Suspect]
     Active Substance: COPPER
     Indication: PRODUCT USED FOR UNKNOWN INDICATION
     Dosage: UNK
     Route: 015
     Dates: start: 20190123, end: 20190128

REACTIONS (19)
  - Urethritis [Unknown]
  - Muscle spasms [Unknown]
  - Weight decreased [Unknown]
  - Nausea [Recovered/Resolved]
  - Pain in extremity [Unknown]
  - Menopause [Unknown]
  - Amenorrhoea [Unknown]
  - Procedural pain [Unknown]
  - Abdominal pain upper [Unknown]
  - Paraesthesia [Not Recovered/Not Resolved]
  - Feeling of body temperature change [Unknown]
  - Feeling abnormal [Unknown]
  - Dizziness [Unknown]
  - Vomiting [Unknown]
  - Urethral pain [Unknown]
  - Helplessness [Unknown]
  - Haemorrhage [Unknown]
  - Night sweats [Unknown]
  - Asthenia [Recovering/Resolving]

NARRATIVE: CASE EVENT DATE: 2019
